FAERS Safety Report 19933096 (Version 1)
Quarter: 2021Q4

REPORT INFORMATION
  Report Type: Spontaneous
  Country: US (occurrence: US)
  Receive Date: 20211006
  Receipt Date: 20211006
  Transmission Date: 20220303
  Serious: Yes (Death)
  Sender: FDA-Public Use
  Company Number: None

PATIENT
  Age: 58 Year
  Sex: Male
  Weight: 98 kg

DRUGS (1)
  1. ALLOPURINOL [Suspect]
     Active Substance: ALLOPURINOL
     Indication: Blood uric acid
     Route: 048
     Dates: start: 20190326, end: 20210702

REACTIONS (12)
  - Clostridium difficile colitis [None]
  - Rash [None]
  - Pain of skin [None]
  - Hypoglycaemia [None]
  - Skin exfoliation [None]
  - Skin ulcer [None]
  - Hypotension [None]
  - Mental status changes [None]
  - Cognitive disorder [None]
  - Hypoxia [None]
  - Erythrodermic psoriasis [None]
  - Calciphylaxis [None]

NARRATIVE: CASE EVENT DATE: 20210702
